FAERS Safety Report 5328515-2 (Version None)
Quarter: 2007Q2

REPORT INFORMATION
  Report Type: 
  Country: None (occurrence: None)
  Receive Date: 20070518
  Receipt Date: 20070511
  Transmission Date: 20071010
  Serious: Yes (Disabling)
  Sender: FDA-Public Use
  Company Number: US-AMGEN-US224217

PATIENT
  Age: 72 Year
  Sex: Female

DRUGS (2)
  1. SENSIPAR [Suspect]
     Indication: DRUG USE FOR UNKNOWN INDICATION
     Route: 065
     Dates: start: 20060301, end: 20070401
  2. CRESTOR [Suspect]
     Route: 065
     Dates: end: 20070501

REACTIONS (5)
  - CONTUSION [None]
  - FATIGUE [None]
  - MALAISE [None]
  - MUSCLE DISORDER [None]
  - NAUSEA [None]
